FAERS Safety Report 17459077 (Version 2)
Quarter: 2020Q1

REPORT INFORMATION
  Report Type: Spontaneous
  Country: US (occurrence: US)
  Receive Date: 20200226
  Receipt Date: 20200305
  Transmission Date: 20200409
  Serious: Yes (Other)
  Sender: FDA-Public Use
  Company Number: US-FRESENIUS KABI-FK202001824

PATIENT
  Age: 68 Year
  Sex: Female
  Weight: 94 kg

DRUGS (3)
  1. HEPARIN SODIUM (MANUFACTURER UNKNOWN) [Concomitant]
     Active Substance: HEPARIN SODIUM
     Indication: PRODUCT USED FOR UNKNOWN INDICATION
     Route: 065
     Dates: start: 20200220
  2. HEPARIN SODIUM (MANUFACTURER UNKNOWN) [Concomitant]
     Active Substance: HEPARIN SODIUM
     Route: 065
     Dates: start: 20200220
  3. PROTAMINE SULFATE INJECTION, USP [Suspect]
     Active Substance: PROTAMINE SULFATE
     Indication: PRODUCT USED FOR UNKNOWN INDICATION
     Route: 042
     Dates: start: 20200220

REACTIONS (2)
  - Blood pressure decreased [Recovering/Resolving]
  - Cardio-respiratory arrest [Recovering/Resolving]

NARRATIVE: CASE EVENT DATE: 20200220
